FAERS Safety Report 4349592-1 (Version None)
Quarter: 2004Q1

REPORT INFORMATION
  Report Type: 
  Country: None (occurrence: None)
  Receive Date: 20040329
  Receipt Date: 20031202
  Transmission Date: 20041129
  Serious: No
  Sender: FDA-Public Use
  Company Number: USA031253671

PATIENT
  Age: 12 Year
  Sex: Male
  Weight: 32 kg

DRUGS (5)
  1. STRATTERA [Suspect]
     Indication: ATTENTION DEFICIT/HYPERACTIVITY DISORDER
     Dosage: 40 MG
     Dates: start: 20030901, end: 20031129
  2. NALEX-A [Concomitant]
  3. NASONEX [Concomitant]
  4. ROBITUSSIN (GUAIFENESIN) [Concomitant]
  5. TYLENOL [Concomitant]

REACTIONS (7)
  - ARTHRALGIA [None]
  - COUGH [None]
  - DECREASED APPETITE [None]
  - HAIR PLUCKING [None]
  - NERVOUSNESS [None]
  - PHARYNGOLARYNGEAL PAIN [None]
  - SINUS DISORDER [None]
